FAERS Safety Report 7937960-8 (Version None)
Quarter: 2011Q4

REPORT INFORMATION
  Report Type: 
  Country: None (occurrence: None)
  Receive Date: 20111123
  Receipt Date: 20111116
  Transmission Date: 20120403
  Serious: Yes (Disabling, Other)
  Sender: FDA-Public Use
  Company Number: JP-PFIZER INC-2011236913

PATIENT
  Age: 91 Year
  Sex: Female
  Weight: 38 kg

DRUGS (2)
  1. MYCOBUTIN [Suspect]
     Indication: ATYPICAL MYCOBACTERIAL INFECTION
     Dosage: 150 MG, 1X/DAY
     Route: 048
     Dates: start: 20090709, end: 20100101
  2. CLARITHROMYCIN [Suspect]
     Indication: ATYPICAL MYCOBACTERIAL INFECTION
     Dosage: 400 MG, 2X/DAY
     Route: 048
     Dates: start: 20090216, end: 20100101

REACTIONS (3)
  - UVEITIS [None]
  - GLAUCOMA [None]
  - PIGMENTATION DISORDER [None]
